FAERS Safety Report 17216220 (Version 2)
Quarter: 2020Q1

REPORT INFORMATION
  Report Type: Report from Study
  Country: FR (occurrence: FR)
  Receive Date: 20191230
  Receipt Date: 20200225
  Transmission Date: 20200409
  Serious: Yes (Death, Hospitalization)
  Sender: FDA-Public Use
  Company Number: FR-BAYER-2019-236021

PATIENT
  Sex: Male
  Weight: 58 kg

DRUGS (7)
  1. STIVARGA [Suspect]
     Active Substance: REGORAFENIB
     Indication: HEPATOCELLULAR CARCINOMA
     Dosage: DAILY DOSE 80 MG
     Dates: start: 20191120, end: 20191129
  2. HALDOL [Concomitant]
     Active Substance: HALOPERIDOL
     Indication: VOMITING
  3. PRIMPERAN [Concomitant]
     Active Substance: METOCLOPRAMIDE HYDROCHLORIDE
     Indication: GASTROINTESTINAL TOXICITY
     Dosage: UNK
     Dates: start: 201911
  4. STIVARGA [Suspect]
     Active Substance: REGORAFENIB
     Indication: HEPATOCELLULAR CARCINOMA
     Dosage: DAILY DOSE 120 MG
     Dates: start: 20191113
  5. STIVARGA [Suspect]
     Active Substance: REGORAFENIB
     Indication: HEPATOCELLULAR CARCINOMA
     Dosage: DAILY DOSE 80 MG
     Dates: start: 20191107
  6. ALPRAZOLAM. [Concomitant]
     Active Substance: ALPRAZOLAM
     Dosage: 1 TABLET AS NEEDED
     Dates: start: 20190601
  7. HALDOL [Concomitant]
     Active Substance: HALOPERIDOL
     Indication: GASTROINTESTINAL TOXICITY
     Dosage: UNK
     Dates: start: 20191119

REACTIONS (2)
  - Hepatocellular carcinoma [Fatal]
  - Gastrointestinal toxicity [None]

NARRATIVE: CASE EVENT DATE: 20191129
